FAERS Safety Report 5755353-9 (Version None)
Quarter: 2008Q2

REPORT INFORMATION
  Report Type: 
  Country: None (occurrence: None)
  Receive Date: 20080529
  Receipt Date: 20080529
  Transmission Date: 20081010
  Serious: No
  Sender: FDA-Public Use
  Company Number: None

PATIENT
  Age: 39 Year
  Sex: Male

DRUGS (1)
  1. MICARDIS [Suspect]
     Dosage: 1 TABLET  DAILY PO
     Route: 048

REACTIONS (2)
  - ABDOMINAL PAIN [None]
  - PALPITATIONS [None]
